FAERS Safety Report 12628604 (Version 1)
Quarter: 2016Q3

REPORT INFORMATION
  Report Type: Spontaneous
  Country: US (occurrence: None)
  Receive Date: 20160805
  Receipt Date: 20160805
  Transmission Date: 20161109
  Serious: Yes (Hospitalization)
  Sender: FDA-Public Use
  Company Number: None

PATIENT
  Age: 53 Year
  Sex: Female
  Weight: 46.1 kg

DRUGS (3)
  1. OLAPARIB, 150 MG [Suspect]
     Active Substance: OLAPARIB
     Indication: OVARIAN CANCER RECURRENT
     Route: 048
     Dates: start: 20160324, end: 20160713
  2. TREMELIMUMAB, 10 MG/KG [Suspect]
     Active Substance: TREMELIMUMAB
     Indication: OVARIAN CANCER RECURRENT
     Route: 042
     Dates: start: 20160324, end: 20160616
  3. KEPPRA [Concomitant]
     Active Substance: LEVETIRACETAM

REACTIONS (7)
  - Abnormal faeces [None]
  - Abdominal pain [None]
  - Generalised tonic-clonic seizure [None]
  - Flatulence [None]
  - Immune system disorder [None]
  - Diarrhoea [None]
  - Abdominal distension [None]

NARRATIVE: CASE EVENT DATE: 20160720
